FAERS Safety Report 14026763 (Version 2)
Quarter: 2018Q3

REPORT INFORMATION
  Report Type: Spontaneous
  Country: AU (occurrence: AU)
  Receive Date: 20170929
  Receipt Date: 20180927
  Transmission Date: 20181010
  Serious: No
  Sender: FDA-Public Use
  Company Number: AU-NOVEN PHARMACEUTICALS, INC.-AU2017000953

PATIENT

DRUGS (1)
  1. ESTRADIOL/NORETHISTERONE ACETATE [Suspect]
     Active Substance: ESTRADIOL\NORETHINDRONE ACETATE
     Indication: HORMONE REPLACEMENT THERAPY
     Dosage: UNK, EVERY 72 HOURS
     Route: 062
     Dates: start: 20170702, end: 20170717

REACTIONS (4)
  - Application site pain [Unknown]
  - Rash [Recovered/Resolved]
  - Drug intolerance [Unknown]
  - Scab [Unknown]

NARRATIVE: CASE EVENT DATE: 20170702
